FAERS Safety Report 14371552 (Version 1)
Quarter: 2018Q1

REPORT INFORMATION
  Report Type: Spontaneous
  Country: US (occurrence: US)
  Receive Date: 20180109
  Receipt Date: 20180109
  Transmission Date: 20180509
  Serious: No
  Sender: FDA-Public Use
  Company Number: None

PATIENT
  Sex: Female

DRUGS (1)
  1. VALIUM [Suspect]
     Active Substance: DIAZEPAM
     Indication: ANXIETY

REACTIONS (4)
  - Condition aggravated [None]
  - Anxiety [None]
  - Crying [None]
  - Depressed mood [None]

NARRATIVE: CASE EVENT DATE: 19840101
